FAERS Safety Report 15030753 (Version 5)
Quarter: 2018Q3

REPORT INFORMATION
  Report Type: Spontaneous
  Country: US (occurrence: US)
  Receive Date: 20180619
  Receipt Date: 20180827
  Transmission Date: 20181010
  Serious: No
  Sender: FDA-Public Use
  Company Number: US-TAKEDA-2018MPI007878

PATIENT
  Age: 71 Year
  Sex: Female

DRUGS (15)
  1. CLONAZEPAM. [Concomitant]
     Active Substance: CLONAZEPAM
  2. TRIPLE ANTIBIOTIC PLUS [Concomitant]
     Active Substance: BACITRACIN ZINC\NEOMYCIN\POLYMYXIN B SULFATE\PRAMOXINE HYDROCHLORIDE
  3. NINLARO [Suspect]
     Active Substance: IXAZOMIB CITRATE
     Indication: PLASMA CELL MYELOMA
     Dosage: 2.3 MG, UNK
     Route: 048
     Dates: start: 20141003
  4. ASPIRIN CHILDREN [Concomitant]
     Active Substance: ASPIRIN
  5. ERYTHROMYCIN BASE [Concomitant]
     Active Substance: ERYTHROMYCIN
  6. VOLTAREN [Concomitant]
     Active Substance: DICLOFENAC SODIUM
  7. CAPSAICIN. [Concomitant]
     Active Substance: CAPSAICIN
  8. ANTI ITCH                          /00622802/ [Concomitant]
  9. IBUPROFEN. [Concomitant]
     Active Substance: IBUPROFEN
     Dosage: UNK
  10. ZOMETA [Concomitant]
     Active Substance: ZOLEDRONIC ACID
  11. COENZYME Q10 [Concomitant]
     Active Substance: UBIDECARENONE
  12. ACETAMINOPHEN. [Concomitant]
     Active Substance: ACETAMINOPHEN
  13. MYLANTA [Concomitant]
     Active Substance: ALUMINUM HYDROXIDE\DIMETHICONE\MAGNESIUM HYDROXIDE
  14. VITAMIN B12 [Concomitant]
     Active Substance: CYANOCOBALAMIN
  15. VITAMIN E                          /00110501/ [Concomitant]
     Active Substance: TOCOPHEROL

REACTIONS (10)
  - Musculoskeletal pain [Unknown]
  - Asthenia [Unknown]
  - Ear pruritus [Not Recovered/Not Resolved]
  - Back pain [Unknown]
  - Decreased appetite [Not Recovered/Not Resolved]
  - Neck pain [Unknown]
  - Secretion discharge [Not Recovered/Not Resolved]
  - Bone pain [Not Recovered/Not Resolved]
  - Musculoskeletal chest pain [Unknown]
  - Spinal pain [Unknown]

NARRATIVE: CASE EVENT DATE: 20180705
